FAERS Safety Report 7129261-5 (Version None)
Quarter: 2010Q4

REPORT INFORMATION
  Report Type: 
  Country: None (occurrence: None)
  Receive Date: 20101130
  Receipt Date: 20101122
  Transmission Date: 20110411
  Serious: No
  Sender: FDA-Public Use
  Company Number: US-PFIZER INC-2010130840

PATIENT
  Sex: Male
  Weight: 136 kg

DRUGS (1)
  1. CHANTIX [Suspect]
     Indication: SMOKING CESSATION THERAPY
     Dosage: UNK
     Route: 048
     Dates: start: 20100810, end: 20100910

REACTIONS (3)
  - ABNORMAL DREAMS [None]
  - HEART RATE INCREASED [None]
  - MALAISE [None]
